FAERS Safety Report 21676082 (Version 7)
Quarter: 2023Q1

REPORT INFORMATION
  Report Type: Spontaneous
  Country: HU (occurrence: HU)
  Receive Date: 20221202
  Receipt Date: 20230117
  Transmission Date: 20230417
  Serious: Yes (Death, Hospitalization, Other)
  Sender: FDA-Public Use
  Company Number: HU-KRKA-HU2022K14240LIT

PATIENT
  Age: 63 Year
  Sex: Female

DRUGS (26)
  1. BENDAMUSTINE HYDROCHLORIDE [Suspect]
     Active Substance: BENDAMUSTINE HYDROCHLORIDE
     Indication: Plasma cell myeloma
     Dosage: FREQUENCY TIME : CYCLICAL
     Route: 042
  2. BENDAMUSTINE HYDROCHLORIDE [Suspect]
     Active Substance: BENDAMUSTINE HYDROCHLORIDE
     Indication: Plasma cell myeloma
     Dosage: FREQUENCY TIME : CYCLICAL
     Route: 042
  3. BENDAMUSTINE HYDROCHLORIDE [Suspect]
     Active Substance: BENDAMUSTINE HYDROCHLORIDE
     Indication: Plasma cell myeloma
     Dosage: FREQUENCY TIME : CYCLICAL
     Route: 042
  4. BENDAMUSTINE HYDROCHLORIDE [Suspect]
     Active Substance: BENDAMUSTINE HYDROCHLORIDE
     Dosage: FREQUENCY TIME : CYCLICAL
     Route: 042
  5. ETOPOSIDE [Suspect]
     Active Substance: ETOPOSIDE
     Indication: Plasma cell myeloma
     Route: 065
  6. DEXAMETHASONE [Suspect]
     Active Substance: DEXAMETHASONE
     Indication: Plasma cell myeloma
     Route: 041
  7. DEXAMETHASONE [Suspect]
     Active Substance: DEXAMETHASONE
     Indication: Plasma cell leukaemia
     Dosage: UNK UNK, UNKNOWN FREQ.
     Route: 065
  8. MANNITOL [Suspect]
     Active Substance: MANNITOL
     Indication: Intracranial pressure increased
     Route: 042
  9. MANNITOL [Suspect]
     Active Substance: MANNITOL
     Route: 041
  10. DARZALEX [Suspect]
     Active Substance: DARATUMUMAB
     Indication: Plasma cell myeloma
     Route: 065
  11. DARZALEX [Suspect]
     Active Substance: DARATUMUMAB
     Indication: Plasma cell leukaemia
     Route: 065
  12. DARZALEX [Suspect]
     Active Substance: DARATUMUMAB
     Route: 065
  13. LENALIDOMIDE [Suspect]
     Active Substance: LENALIDOMIDE
     Indication: Plasma cell myeloma
     Route: 065
  14. LENALIDOMIDE [Suspect]
     Active Substance: LENALIDOMIDE
     Indication: Plasma cell leukaemia
     Route: 065
  15. KYPROLIS [Suspect]
     Active Substance: CARFILZOMIB
     Indication: Plasma cell myeloma
     Route: 065
  16. KYPROLIS [Suspect]
     Active Substance: CARFILZOMIB
     Indication: Plasma cell leukaemia
     Route: 065
  17. MELPHALAN [Suspect]
     Active Substance: MELPHALAN
     Indication: Product used for unknown indication
     Route: 065
  18. MELPHALAN [Suspect]
     Active Substance: MELPHALAN
     Indication: Product used for unknown indication
     Route: 065
  19. CARFILZOMIB [Suspect]
     Active Substance: CARFILZOMIB
     Indication: Plasma cell leukaemia
     Route: 065
  20. CARFILZOMIB [Suspect]
     Active Substance: CARFILZOMIB
     Indication: Plasma cell myeloma
     Route: 065
  21. CARFILZOMIB [Suspect]
     Active Substance: CARFILZOMIB
     Indication: Stem cell transplant
     Route: 065
  22. THALIDOMIDE [Suspect]
     Active Substance: THALIDOMIDE
     Indication: Plasma cell leukaemia
     Route: 042
  23. THALIDOMIDE [Suspect]
     Active Substance: THALIDOMIDE
     Indication: Plasma cell myeloma
     Route: 065
  24. BORTEZOMIB [Suspect]
     Active Substance: BORTEZOMIB
     Indication: Plasma cell leukaemia
     Route: 065
  25. BORTEZOMIB [Suspect]
     Active Substance: BORTEZOMIB
     Indication: Plasma cell myeloma
     Route: 065
  26. BORTEZOMIB [Suspect]
     Active Substance: BORTEZOMIB
     Route: 065

REACTIONS (14)
  - Cerebral toxoplasmosis [Fatal]
  - Infection in an immunocompromised host [Fatal]
  - Klebsiella infection [Fatal]
  - Plasma cell myeloma [Fatal]
  - Drug ineffective [Fatal]
  - Clostridial sepsis [Unknown]
  - Renal impairment [Unknown]
  - Cytopenia [Unknown]
  - Plasma cell myeloma refractory [Unknown]
  - Clostridium difficile colitis [Recovered/Resolved]
  - Colitis [Not Recovered/Not Resolved]
  - Sepsis [Recovering/Resolving]
  - Lymphopenia [Not Recovered/Not Resolved]
  - Pseudomembranous colitis [Recovering/Resolving]
